FAERS Safety Report 20599413 (Version 1)
Quarter: 2022Q1

REPORT INFORMATION
  Report Type: Spontaneous
  Country: CN (occurrence: CN)
  Receive Date: 20220315
  Receipt Date: 20220315
  Transmission Date: 20220424
  Serious: Yes (Hospitalization)
  Sender: FDA-Public Use
  Company Number: CN-BAXTER-2022BAX005718

PATIENT
  Age: 63 Year
  Sex: Male
  Weight: 65 kg

DRUGS (2)
  1. CYCLOPHOSPHAMIDE [Suspect]
     Active Substance: CYCLOPHOSPHAMIDE
     Indication: Plasma cell myeloma
     Dosage: 0.9% SODIUM CHLORIDE INJECTION 100ML + CYCLOPHOSPHAMIDE FOR INJECTION 0.5G IVGTT.
     Route: 041
     Dates: start: 20220209, end: 20220209
  2. SODIUM CHLORIDE [Suspect]
     Active Substance: SODIUM CHLORIDE
     Indication: Medication dilution
     Dosage: 0.9% SODIUM CHLORIDE INJECTION 100ML + CYCLOPHOSPHAMIDE FOR INJECTION 0.5G
     Route: 041
     Dates: start: 20220209, end: 20220209

REACTIONS (2)
  - Vomiting [Recovering/Resolving]
  - Nausea [Recovering/Resolving]

NARRATIVE: CASE EVENT DATE: 20220209
